FAERS Safety Report 5520625-X (Version None)
Quarter: 2007Q4

REPORT INFORMATION
  Report Type: 
  Country: None (occurrence: None)
  Receive Date: 20071119
  Receipt Date: 20071106
  Transmission Date: 20080405
  Serious: Yes (Other)
  Sender: FDA-Public Use
  Company Number: US-PFIZER INC-2007093744

PATIENT
  Sex: Male
  Weight: 106 kg

DRUGS (16)
  1. VIAGRA [Suspect]
     Indication: ERECTILE DYSFUNCTION
  2. NIASPAN [Interacting]
     Indication: BLOOD CHOLESTEROL INCREASED
  3. COUMADIN [Concomitant]
  4. BYETTA [Concomitant]
  5. METFORMIN HCL [Concomitant]
  6. WELLBUTRIN [Concomitant]
  7. TRILEPTAL [Concomitant]
  8. BUSPAR [Concomitant]
  9. DILTIAZEM [Concomitant]
  10. ALTACE [Concomitant]
  11. LASIX [Concomitant]
  12. LIPITOR [Concomitant]
  13. ZETIA [Concomitant]
  14. POTASSIUM CHLORIDE [Concomitant]
  15. GLIMEPIRIDE [Concomitant]
  16. FOLIC ACID [Concomitant]

REACTIONS (4)
  - BLOOD PRESSURE ABNORMAL [None]
  - BURNING SENSATION [None]
  - DRUG INTERACTION [None]
  - FLUSHING [None]
